FAERS Safety Report 15440939 (Version 1)
Quarter: 2018Q3

REPORT INFORMATION
  Report Type: Spontaneous
  Country: TR (occurrence: TR)
  Receive Date: 20180928
  Receipt Date: 20180928
  Transmission Date: 20181010
  Serious: Yes (Other)
  Sender: FDA-Public Use
  Company Number: TR-JNJFOC-20180932865

PATIENT
  Age: 68 Year
  Sex: Female
  Weight: 90 kg

DRUGS (2)
  1. XARELTO [Suspect]
     Active Substance: RIVAROXABAN
     Indication: VENOUS OCCLUSION
     Route: 048
     Dates: start: 2018
  2. DAFLON [Concomitant]
     Indication: VENOUS OCCLUSION
     Route: 048
     Dates: start: 201809

REACTIONS (6)
  - Postoperative wound complication [Recovering/Resolving]
  - Product use in unapproved indication [Unknown]
  - Somnolence [Unknown]
  - Peripheral swelling [Unknown]
  - Peripheral swelling [Unknown]
  - Venous occlusion [Unknown]

NARRATIVE: CASE EVENT DATE: 201809
